FAERS Safety Report 9523251 (Version 2)
Quarter: 2013Q4

REPORT INFORMATION
  Report Type: Report from Study
  Country: BR (occurrence: BR)
  Receive Date: 20130913
  Receipt Date: 20131014
  Transmission Date: 20140711
  Serious: No
  Sender: FDA-Public Use
  Company Number: PHHY2013BR101615

PATIENT
  Sex: Female

DRUGS (9)
  1. STALEVO [Suspect]
     Indication: PARKINSON^S DISEASE
     Dosage: UNK UKN, 2-3 TIMES DAILY
     Route: 048
     Dates: end: 20130908
  2. PRAMIPEXOLE [Suspect]
     Indication: PARKINSON^S DISEASE
     Dosage: UNK UKN, BID
     Dates: end: 20130902
  3. RIVOTRIL [Concomitant]
     Indication: ANXIETY
     Dosage: 1 DF, DAILY
     Route: 048
  4. LOSARTAN [Concomitant]
     Indication: BLOOD PRESSURE INCREASED
     Dosage: 1 DF, DAILY
     Route: 048
     Dates: start: 2005
  5. HYDROCHLOROTHIAZIDE [Concomitant]
     Indication: DIURETIC THERAPY
     Dosage: 1 DF, DAILY
     Route: 048
     Dates: start: 2005
  6. DIOSMIN                            /01026201/ [Concomitant]
     Indication: CARDIOVASCULAR DISORDER
     Dosage: 1 DF, DAILY
     Route: 048
     Dates: start: 2005
  7. DIELOFT [Concomitant]
     Indication: DEPRESSION
     Dosage: 1 DF, DAILY
     Route: 048
  8. MELOXICAM [Concomitant]
     Indication: ARTHRITIS
     Dosage: 2 DF, DAILY
     Dates: start: 201307, end: 201308
  9. PROLOPA [Concomitant]
     Indication: PARKINSON^S DISEASE
     Dosage: 4 DF, DAILY
     Route: 048
     Dates: start: 201309

REACTIONS (3)
  - Daydreaming [Recovering/Resolving]
  - Feeling abnormal [Recovering/Resolving]
  - Hallucination [Recovering/Resolving]
